FAERS Safety Report 20495367 (Version 3)
Quarter: 2022Q1

REPORT INFORMATION
  Report Type: Spontaneous
  Country: JP (occurrence: JP)
  Receive Date: 20220221
  Receipt Date: 20220320
  Transmission Date: 20220423
  Serious: Yes (Death)
  Sender: FDA-Public Use
  Company Number: JP-JNJFOC-20220233212

PATIENT
  Age: 74 Year
  Sex: Female

DRUGS (24)
  1. TRACLEER [Suspect]
     Active Substance: BOSENTAN
     Indication: Skin ulcer
     Dosage: DOSE UNKNOWN
     Route: 048
     Dates: start: 20161122, end: 20161226
  2. TRACLEER [Suspect]
     Active Substance: BOSENTAN
     Route: 048
     Dates: start: 20161227, end: 20170130
  3. TRACLEER [Suspect]
     Active Substance: BOSENTAN
     Route: 048
     Dates: start: 20170131, end: 20190204
  4. REVATIO [Concomitant]
     Active Substance: SILDENAFIL CITRATE
     Indication: Pulmonary hypertension
     Route: 048
     Dates: start: 20111122
  5. REVATIO [Concomitant]
     Active Substance: SILDENAFIL CITRATE
     Route: 048
     Dates: end: 20181224
  6. LANSOPRAZOLE [Concomitant]
     Active Substance: LANSOPRAZOLE
     Indication: Gastrooesophageal reflux disease
     Route: 048
     Dates: start: 20120312, end: 20190204
  7. ALFAROL [Concomitant]
     Active Substance: ALFACALCIDOL
     Indication: Osteoporosis
     Route: 048
     Dates: start: 20140624
  8. ALFAROL [Concomitant]
     Active Substance: ALFACALCIDOL
     Route: 048
  9. ALFAROL [Concomitant]
     Active Substance: ALFACALCIDOL
     Route: 048
     Dates: end: 20190204
  10. ACTONEL [Concomitant]
     Active Substance: RISEDRONATE SODIUM
     Indication: Osteoporosis
     Route: 048
     Dates: start: 20140624
  11. ACTONEL [Concomitant]
     Active Substance: RISEDRONATE SODIUM
     Route: 048
     Dates: end: 20180330
  12. TOCOPHERYL NICOTINATE, D-.ALPHA. [Concomitant]
     Active Substance: TOCOPHERYL NICOTINATE, D-.ALPHA.
     Indication: Skin ulcer
     Route: 048
     Dates: start: 20120117, end: 20190204
  13. GLYCOSAMINOGLYCANS [Concomitant]
     Active Substance: GLYCOSAMINOGLYCANS
     Indication: Skin ulcer
     Route: 061
     Dates: start: 20120918, end: 20190204
  14. U-PASTA [Concomitant]
     Indication: Skin ulcer
     Route: 061
  15. ALPROSTADIL [Concomitant]
     Active Substance: ALPROSTADIL
     Indication: Skin ulcer
     Route: 061
     Dates: start: 20170517, end: 20170710
  16. .ALPHA.-TOCOPHEROL ACETATE [Concomitant]
     Active Substance: .ALPHA.-TOCOPHEROL ACETATE
     Route: 061
     Dates: start: 20170905, end: 20180130
  17. SILVER SULFADIAZINE [Concomitant]
     Active Substance: SILVER SULFADIAZINE
     Indication: Skin ulcer
     Route: 061
     Dates: start: 20171212, end: 20180618
  18. SILVER SULFADIAZINE [Concomitant]
     Active Substance: SILVER SULFADIAZINE
     Route: 061
     Dates: start: 20181113, end: 20190204
  19. LOCOID [Concomitant]
     Active Substance: HYDROCORTISONE BUTYRATE
     Indication: Seborrhoeic dermatitis
     Route: 061
     Dates: end: 20180925
  20. CALONAL [Concomitant]
     Active Substance: ACETAMINOPHEN
     Indication: Pain prophylaxis
     Route: 048
     Dates: start: 20180320, end: 20180322
  21. SODIUM GUALENATE [Concomitant]
     Active Substance: SODIUM GUALENATE
     Indication: Prophylaxis
     Route: 061
     Dates: start: 20180807, end: 20180925
  22. NADIFLOXACIN [Concomitant]
     Active Substance: NADIFLOXACIN
     Indication: Skin infection
     Route: 061
     Dates: start: 20170711, end: 20170904
  23. NADIFLOXACIN [Concomitant]
     Active Substance: NADIFLOXACIN
     Route: 061
     Dates: start: 20180925, end: 20181112
  24. RECLAST [Concomitant]
     Active Substance: ZOLEDRONIC ACID
     Indication: Osteoporosis
     Route: 042
     Dates: start: 20180320, end: 20180320

REACTIONS (1)
  - Infection [Fatal]
